FAERS Safety Report 9385056 (Version 1)
Quarter: 2013Q3

REPORT INFORMATION
  Report Type: Spontaneous
  Country: US (occurrence: US)
  Receive Date: 20130705
  Receipt Date: 20130705
  Transmission Date: 20140515
  Serious: No
  Sender: FDA-Public Use
  Company Number: US-009507513-1306USA014467

PATIENT
  Age: 66 Year
  Sex: Male

DRUGS (4)
  1. JANUVIA [Suspect]
     Indication: BLOOD GLUCOSE
     Dosage: 100 MG, ONCE DAILY
     Route: 048
     Dates: start: 20130605
  2. METFORMIN [Concomitant]
  3. PRINIVIL [Concomitant]
  4. PRAVASTATIN SODIUM [Concomitant]

REACTIONS (2)
  - Headache [Recovering/Resolving]
  - Wrong technique in drug usage process [Unknown]
